FAERS Safety Report 22323476 (Version 2)
Quarter: 2023Q2

REPORT INFORMATION
  Report Type: Spontaneous
  Country: US (occurrence: US)
  Receive Date: 20230516
  Receipt Date: 20230518
  Transmission Date: 20230722
  Serious: No
  Sender: FDA-Public Use
  Company Number: US-SA-SAC20230516000179

PATIENT
  Sex: Male

DRUGS (1)
  1. AUBAGIO [Suspect]
     Active Substance: TERIFLUNOMIDE
     Indication: Multiple sclerosis
     Dosage: 14 MG, QD
     Route: 048
     Dates: start: 202211

REACTIONS (6)
  - Muscle spasticity [Unknown]
  - Amnesia [Unknown]
  - Limb injury [Unknown]
  - Anti-interferon antibody [Unknown]
  - Impaired quality of life [Unknown]
  - Drug ineffective [Unknown]
